FAERS Safety Report 4918075-X (Version None)
Quarter: 2006Q1

REPORT INFORMATION
  Report Type: 
  Country: None (occurrence: None)
  Receive Date: 20060221
  Receipt Date: 20051005
  Transmission Date: 20060701
  Serious: Yes (Hospitalization)
  Sender: FDA-Public Use
  Company Number: CA-MERCK-0510CAN00103

PATIENT
  Age: 54 Year
  Sex: Male
  Weight: 94 kg

DRUGS (17)
  1. VIOXX [Suspect]
     Indication: ARTHRALGIA
     Route: 048
     Dates: start: 20030401
  2. VIOXX [Suspect]
     Route: 048
     Dates: start: 20031228, end: 20031231
  3. VIOXX [Suspect]
     Route: 048
     Dates: end: 20040901
  4. VIOXX [Suspect]
     Route: 048
     Dates: start: 20040117
  5. VIOXX [Suspect]
     Route: 048
     Dates: start: 20040110, end: 20040112
  6. VIOXX [Suspect]
     Route: 065
     Dates: start: 20040112, end: 20040115
  7. VIOXX [Suspect]
     Route: 048
     Dates: start: 20040124
  8. MEPERIDINE HYDROCHLORIDE [Concomitant]
     Route: 065
  9. CEPHALEXIN [Concomitant]
     Route: 065
  10. PAROXETINE HYDROCHLORIDE [Concomitant]
     Route: 065
  11. AMITRIPTYLINE HYDROCHLORIDE [Concomitant]
     Route: 065
  12. CLONAZEPAM [Concomitant]
     Route: 065
  13. FLUNARIZINE HYDROCHLORIDE [Concomitant]
     Route: 065
  14. CIMETIDINE [Concomitant]
     Indication: CHEST DISCOMFORT
     Route: 065
  15. VENLAFAXINE HYDROCHLORIDE [Concomitant]
     Route: 065
  16. BUPROPION HYDROCHLORIDE [Concomitant]
     Route: 065
  17. BUPROPION HYDROCHLORIDE [Concomitant]
     Route: 065

REACTIONS (20)
  - ACUTE CORONARY SYNDROME [None]
  - ACUTE MYOCARDIAL INFARCTION [None]
  - ANGINA UNSTABLE [None]
  - ATRIOVENTRICULAR BLOCK FIRST DEGREE [None]
  - CHEST PAIN [None]
  - CONFUSIONAL STATE [None]
  - CORONARY ARTERY DISEASE [None]
  - CORONARY ARTERY OCCLUSION [None]
  - ELECTROCARDIOGRAM T WAVE ABNORMAL [None]
  - HEART INJURY [None]
  - HYPERLIPIDAEMIA [None]
  - HYPERTENSION [None]
  - MUSCULOSKELETAL STIFFNESS [None]
  - MYOCARDIAL INFARCTION [None]
  - MYOCARDIAL ISCHAEMIA [None]
  - PAIN [None]
  - RENAL FAILURE [None]
  - RENAL INJURY [None]
  - SINUS BRADYCARDIA [None]
  - SLEEP APNOEA SYNDROME [None]
